FAERS Safety Report 8455443-6 (Version None)
Quarter: 2012Q2

REPORT INFORMATION
  Report Type: 
  Country: None (occurrence: None)
  Receive Date: 20120621
  Receipt Date: 20120612
  Transmission Date: 20120825
  Serious: Yes (Hospitalization)
  Sender: FDA-Public Use
  Company Number: US-GENZYME-CERZ-1002536

PATIENT

DRUGS (1)
  1. CEREZYME [Suspect]
     Indication: GAUCHER'S DISEASE
     Dosage: 100 U/KG, Q2W
     Route: 042

REACTIONS (3)
  - FALL [None]
  - PULMONARY HAEMORRHAGE [None]
  - RIB FRACTURE [None]
